FAERS Safety Report 7255669-3 (Version None)
Quarter: 2011Q1

REPORT INFORMATION
  Report Type: 
  Country: None (occurrence: None)
  Receive Date: 20110129
  Receipt Date: 20100823
  Transmission Date: 20110831
  Serious: No
  Sender: FDA-Public Use
  Company Number: US-ABBOTT-10P-163-0666769-00

PATIENT
  Age: 45 Year
  Sex: Female
  Weight: 61.29 kg

DRUGS (12)
  1. HUMIRA [Suspect]
     Route: 058
  2. IRON SUPPLEMENT [Concomitant]
     Indication: PRODUCT USED FOR UNKNOWN INDICATION
  3. MULTI-VITAMIN [Concomitant]
     Indication: PRODUCT USED FOR UNKNOWN INDICATION
     Route: 048
  4. ACIDOPHILUS [Concomitant]
     Indication: PRODUCT USED FOR UNKNOWN INDICATION
  5. VITAMIN D [Concomitant]
     Indication: PRODUCT USED FOR UNKNOWN INDICATION
  6. CALCIUM [Concomitant]
     Indication: PRODUCT USED FOR UNKNOWN INDICATION
  7. ATIVAN [Concomitant]
     Indication: ANXIETY
     Route: 048
  8. FISH OIL [Concomitant]
     Indication: PRODUCT USED FOR UNKNOWN INDICATION
  9. VITAMIN B-12 [Concomitant]
     Indication: PRODUCT USED FOR UNKNOWN INDICATION
  10. ENTOCORT EC [Concomitant]
     Indication: CROHN'S DISEASE
     Dosage: SLOWLY WEANING MEDICATION OFF SINCE APR 2009
     Dates: start: 20081201
  11. HUMIRA [Suspect]
     Indication: CROHN'S DISEASE
     Route: 058
  12. ASCORBIC ACID [Concomitant]
     Indication: PRODUCT USED FOR UNKNOWN INDICATION

REACTIONS (1)
  - CROHN'S DISEASE [None]
